FAERS Safety Report 8431949-0 (Version None)
Quarter: 2012Q2

REPORT INFORMATION
  Report Type: 
  Country: None (occurrence: None)
  Receive Date: 20120613
  Receipt Date: 20120112
  Transmission Date: 20120825
  Serious: No
  Sender: FDA-Public Use
  Company Number: US-ASTRAZENECA-2011SE69696

PATIENT
  Age: 47 Year
  Sex: Male
  Weight: 131.1 kg

DRUGS (8)
  1. RHINOCORT [Suspect]
     Route: 045
     Dates: start: 20020101
  2. VERAPAMIL [Concomitant]
     Indication: VASODILATATION
  3. IMMUNO THERAPY [Concomitant]
     Indication: ANTIALLERGIC THERAPY
  4. OXYGEN [Concomitant]
     Indication: OXYGEN SATURATION DECREASED
  5. RHINOCORT [Suspect]
     Indication: HYPERSENSITIVITY
     Route: 045
     Dates: start: 20020101
  6. XANAX [Concomitant]
     Indication: AUTONOMIC NEUROPATHY
  7. NEXIUM [Suspect]
     Indication: GASTROOESOPHAGEAL REFLUX DISEASE
     Route: 048
  8. MORPHINE [Concomitant]
     Indication: DYSPNOEA

REACTIONS (4)
  - DRUG PRESCRIBING ERROR [None]
  - DRUG DOSE OMISSION [None]
  - GENERAL PHYSICAL HEALTH DETERIORATION [None]
  - INCORRECT DOSE ADMINISTERED [None]
